FAERS Safety Report 8582022-2 (Version None)
Quarter: 2012Q3

REPORT INFORMATION
  Report Type: 
  Country: None (occurrence: None)
  Receive Date: 20120809
  Receipt Date: 20120806
  Transmission Date: 20120928
  Serious: Yes (Hospitalization, Other)
  Sender: FDA-Public Use
  Company Number: US-PFIZER INC-2012173777

PATIENT
  Age: 56 Year
  Sex: Male
  Weight: 90.703 kg

DRUGS (2)
  1. DILANTIN [Suspect]
     Indication: EPILEPSY
     Dosage: 100 MG, 3X/DAY
     Dates: start: 19680101
  2. CARVEDILOL [Concomitant]
     Indication: HYPERTENSION
     Dosage: 12.5 MG, 2X/DAY

REACTIONS (3)
  - DEPRESSION [None]
  - CONVULSION [None]
  - MENTAL DISABILITY [None]
